FAERS Safety Report 4377827-8 (Version None)
Quarter: 2004Q2

REPORT INFORMATION
  Report Type: 
  Country: None (occurrence: None)
  Receive Date: 20040609
  Receipt Date: 20040527
  Transmission Date: 20050107
  Serious: Yes (Hospitalization, Other)
  Sender: FDA-Public Use
  Company Number: 061-0981-990619

PATIENT
  Age: 71 Year
  Sex: Male
  Weight: 103.5 kg

DRUGS (6)
  1. ATORVASTATIN (ATORVASTATIN) [Suspect]
     Indication: HYPERLIPIDAEMIA
     Dosage: SEE IMAGE, ORAL
     Route: 048
     Dates: start: 19990705, end: 19990906
  2. ATORVASTATIN (ATORVASTATIN) [Suspect]
     Indication: HYPERLIPIDAEMIA
     Dosage: SEE IMAGE, ORAL
     Route: 048
     Dates: start: 19990907
  3. ASPIRIN [Concomitant]
  4. VERAPAMIL HCL [Concomitant]
  5. ENALAPRIL MALEATE [Concomitant]
  6. INDOMETHACIN [Concomitant]

REACTIONS (9)
  - BENIGN PROSTATIC HYPERPLASIA [None]
  - BLADDER CANCER STAGE II [None]
  - BLOOD BILIRUBIN INCREASED [None]
  - BLOOD CHLORIDE ABNORMAL [None]
  - CHRONIC OBSTRUCTIVE AIRWAYS DISEASE [None]
  - CONSTIPATION [None]
  - ESCHERICHIA URINARY TRACT INFECTION [None]
  - LOWER RESPIRATORY TRACT INFECTION [None]
  - LUNG CONSOLIDATION [None]
